FAERS Safety Report 15764508 (Version 2)
Quarter: 2019Q1

REPORT INFORMATION
  Report Type: Spontaneous
  Country: US (occurrence: US)
  Receive Date: 20181227
  Receipt Date: 20190116
  Transmission Date: 20190417
  Serious: No
  Sender: FDA-Public Use
  Company Number: US-IPSEN BIOPHARMACEUTICALS, INC.-2018-19641

PATIENT
  Sex: Female

DRUGS (3)
  1. SOMATULINE DEPOT [Suspect]
     Active Substance: LANREOTIDE ACETATE
     Indication: OFF LABEL USE
  2. SOMATULINE DEPOT [Suspect]
     Active Substance: LANREOTIDE ACETATE
     Indication: OLIGOMENORRHOEA
     Dosage: 90 MG/0.3 ML
     Route: 058
     Dates: start: 201812
  3. TOPIRAMATE. [Concomitant]
     Active Substance: TOPIRAMATE

REACTIONS (5)
  - Nausea [Not Recovered/Not Resolved]
  - Alopecia [Unknown]
  - Weight decreased [Unknown]
  - Off label use [Unknown]
  - Stress [Not Recovered/Not Resolved]
